FAERS Safety Report 6193230-2 (Version None)
Quarter: 2009Q2

REPORT INFORMATION
  Report Type: 
  Country: None (occurrence: None)
  Receive Date: 20090518
  Receipt Date: 20090508
  Transmission Date: 20091009
  Serious: Yes (Hospitalization)
  Sender: FDA-Public Use
  Company Number: A0784408A

PATIENT
  Age: 67 Year
  Sex: Male
  Weight: 90.9 kg

DRUGS (13)
  1. AVANDIA [Suspect]
     Dosage: 8MG PER DAY
     Dates: start: 20020201, end: 20070601
  2. METFORMIN HCL [Concomitant]
     Dosage: 500U TWICE PER DAY
     Dates: start: 20070601
  3. HYDROCHLOROTHIAZIDE [Concomitant]
     Dates: start: 20030901
  4. VIOXX [Concomitant]
     Dates: start: 20030101
  5. CELEBREX [Concomitant]
     Dates: start: 20040101, end: 20050101
  6. ZOCOR [Concomitant]
     Dates: start: 20000101, end: 20030801
  7. TRICOR [Concomitant]
     Dates: start: 20030801, end: 20040701
  8. CRESTOR [Concomitant]
     Dates: start: 20040701
  9. IBUPROFEN [Concomitant]
     Indication: PAIN
  10. VITAMIN [Concomitant]
  11. FISH OIL [Concomitant]
  12. ASCORBIC ACID [Concomitant]
  13. VITAMIN D [Concomitant]

REACTIONS (2)
  - CORONARY ARTERY DISEASE [None]
  - MYOCARDIAL INFARCTION [None]
